FAERS Safety Report 25864348 (Version 1)
Quarter: 2025Q3

REPORT INFORMATION
  Report Type: Spontaneous
  Country: EU (occurrence: EU)
  Receive Date: 20250930
  Receipt Date: 20250930
  Transmission Date: 20251021
  Serious: Yes (Life-Threatening)
  Sender: ROCHE
  Company Number: None

PATIENT
  Age: 82 Year
  Sex: Male

DRUGS (4)
  1. OBINUTUZUMAB [Suspect]
     Active Substance: OBINUTUZUMAB
     Indication: Diffuse large B-cell lymphoma
     Route: 042
     Dates: start: 20250828, end: 20250829
  2. COLUMVI [Suspect]
     Active Substance: GLOFITAMAB-GXBM
     Indication: Diffuse large B-cell lymphoma
     Route: 042
     Dates: start: 20250901, end: 20250901
  3. COLUMVI [Suspect]
     Active Substance: GLOFITAMAB-GXBM
     Route: 042
     Dates: start: 20250905, end: 20250905
  4. COLUMVI [Suspect]
     Active Substance: GLOFITAMAB-GXBM
     Route: 042
     Dates: start: 20250908, end: 20250908

REACTIONS (2)
  - Cytokine release syndrome [Recovered/Resolved]
  - Hepatic cytolysis [Recovering/Resolving]

NARRATIVE: CASE EVENT DATE: 20250901
